FAERS Safety Report 9453236 (Version 2)
Quarter: 2013Q4

REPORT INFORMATION
  Report Type: Spontaneous
  Country: US (occurrence: US)
  Receive Date: 20130812
  Receipt Date: 20131104
  Transmission Date: 20140711
  Serious: Yes (Death, Hospitalization)
  Sender: FDA-Public Use
  Company Number: US-B.I. PHARMACEUTICALS,INC./RIDGEFIELD-2013-BI-24128BP

PATIENT
  Age: 74 Year
  Sex: Female

DRUGS (4)
  1. SPIRIVA [Suspect]
     Indication: CHRONIC OBSTRUCTIVE PULMONARY DISEASE
     Dosage: 18 MCG
     Route: 055
     Dates: start: 201305
  2. VYTORIN [Concomitant]
     Indication: BLOOD CHOLESTEROL INCREASED
  3. CHEMOTHERAPY [Concomitant]
     Indication: NON-SMALL CELL LUNG CANCER
     Dates: start: 20130710, end: 20130726
  4. CHEMOTHERAPY [Concomitant]
     Indication: LYMPHOMA

REACTIONS (2)
  - Pulmonary embolism [Fatal]
  - Chest pain [Unknown]
